FAERS Safety Report 6331217-7 (Version None)
Quarter: 2009Q3

REPORT INFORMATION
  Report Type: 
  Country: None (occurrence: None)
  Receive Date: 20090827
  Receipt Date: 20090819
  Transmission Date: 20100115
  Serious: Yes (Life-Threatening)
  Sender: FDA-Public Use
  Company Number: FR-MERCK-0908FRA00027

PATIENT
  Age: 36 Year
  Sex: Female

DRUGS (13)
  1. SINGULAIR [Suspect]
     Indication: IMMUNE RECONSTITUTION SYNDROME
     Route: 048
     Dates: start: 20090511, end: 20090516
  2. SINGULAIR [Suspect]
     Indication: INFLAMMATION
     Route: 048
     Dates: start: 20090511, end: 20090516
  3. RIFAMPIN [Suspect]
     Indication: DISSEMINATED TUBERCULOSIS
     Route: 048
     Dates: start: 20090503, end: 20090516
  4. ETHAMBUTOL HYDROCHLORIDE [Suspect]
     Indication: DISSEMINATED TUBERCULOSIS
     Route: 048
     Dates: start: 20090425, end: 20090516
  5. PYRAZINAMIDE [Suspect]
     Indication: DISSEMINATED TUBERCULOSIS
     Route: 048
     Dates: start: 20090425, end: 20090516
  6. ISONIAZID [Suspect]
     Indication: DISSEMINATED TUBERCULOSIS
     Route: 048
     Dates: start: 20090425, end: 20090516
  7. EFAVIRENZ [Suspect]
     Indication: HIV INFECTION
     Route: 048
     Dates: start: 20090505, end: 20090516
  8. EMTRICITABINE AND TENOFOVIR DISOPROXIL FUMARATE [Suspect]
     Indication: HIV INFECTION
     Route: 048
     Dates: start: 20090505, end: 20090516
  9. ENFUVIRTIDE [Suspect]
     Indication: HIV INFECTION
     Route: 058
     Dates: start: 20090505, end: 20090516
  10. SULFAMETHOXAZOLE AND TRIMETHOPRIM [Suspect]
     Indication: ANTIFUNGAL PROPHYLAXIS
     Route: 048
     Dates: start: 20090425, end: 20090516
  11. ZOPICLONE [Suspect]
     Indication: INSOMNIA
     Route: 048
     Dates: start: 20090427, end: 20090516
  12. RIFABUTIN [Concomitant]
     Indication: DISSEMINATED TUBERCULOSIS
     Route: 048
     Dates: start: 20090425, end: 20090503
  13. CLARITHROMYCIN [Concomitant]
     Indication: DISSEMINATED TUBERCULOSIS
     Route: 065
     Dates: start: 20090425, end: 20090503

REACTIONS (1)
  - HEPATITIS FULMINANT [None]
